FAERS Safety Report 21667338 (Version 1)
Quarter: 2022Q4

REPORT INFORMATION
  Report Type: Spontaneous
  Country: US (occurrence: None)
  Receive Date: 20221130
  Receipt Date: 20221130
  Transmission Date: 20230113
  Serious: No
  Sender: FDA-Public Use
  Company Number: None

PATIENT
  Age: 75 Year
  Sex: Female
  Weight: 72.9 kg

DRUGS (9)
  1. PAXLOVID [Suspect]
     Active Substance: NIRMATRELVIR\RITONAVIR
     Indication: COVID-19
     Dosage: FREQUENCY : TWICE A DAY;?
     Route: 048
     Dates: start: 20221126, end: 20221128
  2. Estriodol cream [Concomitant]
  3. GARLIC [Concomitant]
     Active Substance: GARLIC
  4. VITAMIN D [Concomitant]
     Active Substance: VITAMIN D NOS
  5. Vitamin C Gummies [Concomitant]
  6. PROBIOTICS NOS [Concomitant]
     Active Substance: PROBIOTICS NOS
  7. Potassium (amino acids) [Concomitant]
  8. Joint compound with glucosamine [Concomitant]
  9. HERBALS\TURMERIC [Concomitant]
     Active Substance: HERBALS\TURMERIC

REACTIONS (1)
  - Urticaria [None]

NARRATIVE: CASE EVENT DATE: 20221128
